FAERS Safety Report 14188500 (Version 1)
Quarter: 2017Q4

REPORT INFORMATION
  Report Type: Spontaneous
  Country: US (occurrence: US)
  Receive Date: 20171114
  Receipt Date: 20171114
  Transmission Date: 20180321
  Serious: No
  Sender: FDA-Public Use
  Company Number: US-BAUSCH-BL-2017-014971

PATIENT
  Age: 67 Year
  Sex: Female
  Weight: 54.48 kg

DRUGS (6)
  1. SYNTHROID [Concomitant]
     Active Substance: LEVOTHYROXINE SODIUM
     Indication: THYROID DISORDER
     Dosage: IN THE MORNING BEFORE BREAKFAST
     Route: 048
  2. APRISO [Suspect]
     Active Substance: MESALAMINE
     Indication: BARRETT^S OESOPHAGUS
     Dosage: 0.375GR (FOUR CAPSULE) ONCE AT NIGHT
     Route: 048
     Dates: start: 20170417
  3. CALCIUM CITRATE WITH VITAMIN D3 [Concomitant]
     Indication: PRODUCT USED FOR UNKNOWN INDICATION
     Dosage: AT NIGHT
     Route: 048
  4. APRISO [Suspect]
     Active Substance: MESALAMINE
     Dosage: 0.375GR (FOUR CAPSULE) ONCE AT MORNING
     Route: 048
     Dates: start: 20170508
  5. PROTONIX [Concomitant]
     Active Substance: PANTOPRAZOLE SODIUM
     Indication: PRODUCT USED FOR UNKNOWN INDICATION
     Dosage: AT NIGHT
     Route: 048
     Dates: start: 20170417
  6. PROTONIX [Concomitant]
     Active Substance: PANTOPRAZOLE SODIUM
     Indication: THYROID DISORDER

REACTIONS (2)
  - Faeces discoloured [Recovered/Resolved]
  - Off label use [Not Recovered/Not Resolved]

NARRATIVE: CASE EVENT DATE: 20170417
